FAERS Safety Report 7958136-4 (Version None)
Quarter: 2011Q4

REPORT INFORMATION
  Report Type: 
  Country: None (occurrence: None)
  Receive Date: 20111205
  Receipt Date: 20111128
  Transmission Date: 20120403
  Serious: Yes (Hospitalization, Other)
  Sender: FDA-Public Use
  Company Number: PHHY2011FR80239

PATIENT
  Sex: Female

DRUGS (13)
  1. ESIDRIX [Suspect]
     Dosage: UNK UKN, UNK
     Route: 048
     Dates: start: 20100201, end: 20110420
  2. ZOLPIDEM [Suspect]
     Dosage: UNK UKN, QD
     Route: 048
     Dates: start: 20100224
  3. ASPIRIN [Suspect]
     Dosage: UNK UKN, QD
     Route: 048
     Dates: start: 20100224
  4. PAROXETINE HCL [Suspect]
     Dosage: 0.5 DF, DAILY
     Dates: start: 20110701
  5. FORLAX [Suspect]
     Dosage: UNK UKN, QD
     Route: 048
     Dates: start: 20100224
  6. BONIVA [Suspect]
     Dosage: UNK UKN, UNK
     Route: 048
     Dates: start: 20100201, end: 20110520
  7. LEXOMIL [Suspect]
     Dosage: 12 MG, UNK
     Route: 048
     Dates: start: 20100817, end: 20110427
  8. PAROXETINE HCL [Suspect]
     Dosage: 20 MG, QD, DECREASED TO 0.5 TABLETS IN JULY 2011
     Route: 048
     Dates: start: 20100706
  9. ATORVASTATIN CALCIUM [Suspect]
     Dosage: UNK UKN, QD
     Route: 048
     Dates: start: 20100723, end: 20110425
  10. PANTOPRAZOLE SODIUM [Suspect]
     Dosage: UNK UKN, QD
     Route: 048
     Dates: start: 20100224
  11. BISOPROLOL FUMARATE [Suspect]
     Dosage: UNK UKN, QD
     Route: 048
     Dates: start: 20100224
  12. EQUANIL [Suspect]
     Dosage: UNK UKN, UNK
     Route: 048
     Dates: start: 20101112, end: 20110513
  13. ACETAMINOPHEN [Suspect]
     Dosage: 500 MG, UNK
     Route: 048
     Dates: start: 20100224

REACTIONS (3)
  - DRUG ERUPTION [None]
  - EOSINOPHIL COUNT INCREASED [None]
  - PRURITUS GENERALISED [None]
